FAERS Safety Report 10137727 (Version 3)
Quarter: 2014Q2

REPORT INFORMATION
  Report Type: Spontaneous
  Country: US (occurrence: None)
  Receive Date: 20140425
  Receipt Date: 20140521
  Transmission Date: 20141212
  Serious: Yes (Other)
  Sender: FDA-Public Use
  Company Number: 2014-US-004607

PATIENT
  Age: 63 Year
  Sex: Female

DRUGS (2)
  1. XYREM [Suspect]
     Indication: INSOMNIA
     Route: 048
     Dates: start: 201004, end: 201005
  2. PNEUMONIA VACCINE (NON-GSK) [Concomitant]
     Indication: IMMUNISATION

REACTIONS (6)
  - Hypersensitivity [None]
  - Dyspnoea [None]
  - Anaphylactic reaction [None]
  - Off label use [None]
  - Allergy to vaccine [None]
  - Speech disorder [None]
